FAERS Safety Report 14843204 (Version 1)
Quarter: 2018Q2

REPORT INFORMATION
  Report Type: Spontaneous
  Country: US (occurrence: US)
  Receive Date: 20180503
  Receipt Date: 20180503
  Transmission Date: 20180711
  Serious: Yes (Hospitalization, Other)
  Sender: FDA-Public Use
  Company Number: US-PFIZER INC-2018180198

PATIENT
  Age: 34 Year
  Sex: Female
  Weight: 45.99 kg

DRUGS (4)
  1. CLOFAZIMINE [Suspect]
     Active Substance: CLOFAZIMINE
     Indication: TUBERCULOSIS
     Dosage: UNK UNK, 1X/DAY (200 (100) MG)
     Dates: start: 20161214
  2. DELAMANID [Suspect]
     Active Substance: DELAMANID
     Indication: TUBERCULOSIS
     Dosage: UNK, 200 (UNKNOWN UNIT)
     Dates: start: 20161214, end: 20170112
  3. LEVOFLOXACIN. [Suspect]
     Active Substance: LEVOFLOXACIN
     Indication: TUBERCULOSIS
     Dosage: 750 MG, 1X/DAY
     Dates: start: 20161214
  4. LINEZOLID. [Suspect]
     Active Substance: LINEZOLID
     Indication: TUBERCULOSIS
     Dosage: 600 MG, 1X/DAY
     Dates: start: 20161214

REACTIONS (13)
  - Bile duct stone [Recovering/Resolving]
  - Cholangitis [Recovering/Resolving]
  - Condition aggravated [Unknown]
  - Syncope [Unknown]
  - Pancreatitis [Recovering/Resolving]
  - Nausea [Unknown]
  - Abdominal pain upper [Unknown]
  - Cholecystitis acute [Recovering/Resolving]
  - Musculoskeletal pain [Unknown]
  - Vomiting [Unknown]
  - Cholecystitis infective [Recovering/Resolving]
  - Jaundice [Recovering/Resolving]
  - Dry mouth [Unknown]

NARRATIVE: CASE EVENT DATE: 20180404
